FAERS Safety Report 10782344 (Version 1)
Quarter: 2015Q1

REPORT INFORMATION
  Report Type: Spontaneous
  Country: FR (occurrence: FR)
  Receive Date: 20150210
  Receipt Date: 20150210
  Transmission Date: 20150721
  Serious: Yes (Death, Hospitalization)
  Sender: FDA-Public Use
  Company Number: FR-BAXTER-2015BAX004727

PATIENT
  Age: 2 Year
  Sex: Female
  Weight: 10 kg

DRUGS (12)
  1. SODIUM LACTATE. [Suspect]
     Active Substance: SODIUM LACTATE
     Indication: PARENTERAL NUTRITION
     Route: 042
     Dates: start: 201501, end: 20150123
  2. TAUROLOCK [Concomitant]
     Indication: INFECTION PROPHYLAXIS
     Route: 065
  3. SMOFLIPID [Suspect]
     Active Substance: FISH OIL\OLIVEOIL\SOYBEAN OIL\TRIGLYCERIDES,UNSPECIFIED LENGTH
     Indication: PARENTERAL NUTRITION
     Route: 042
     Dates: start: 201501, end: 20150123
  4. SODIUM CHLORIDE 20% [Suspect]
     Active Substance: SODIUM CHLORIDE
     Indication: PARENTERAL NUTRITION
     Route: 042
     Dates: start: 201501, end: 20150123
  5. CERNEVIT [Suspect]
     Active Substance: VITAMINS
     Indication: PARENTERAL NUTRITION
     Route: 042
     Dates: start: 201501, end: 20150123
  6. GLUCOSE 50 POUR CENT BAXTER, SOLUTION INJECTABLE POUR PERFUSION [Suspect]
     Active Substance: DEXTROSE
     Indication: PARENTERAL NUTRITION
     Route: 042
     Dates: start: 201501, end: 20150123
  7. PHOCYTAN [Suspect]
     Active Substance: .ALPHA.-GLUCOSE-1-PHOSPHATE
     Indication: PARENTERAL NUTRITION
     Route: 042
     Dates: start: 201501, end: 20150123
  8. CALCIUM GLUCONATE 10% [Suspect]
     Active Substance: CALCIUM GLUCONATE
     Indication: PARENTERAL NUTRITION
     Route: 042
     Dates: start: 201501, end: 20150123
  9. AMINO ACIDS [Suspect]
     Active Substance: AMINO ACIDS
     Indication: PARENTERAL NUTRITION
     Route: 042
     Dates: start: 201501, end: 20150123
  10. MAGNESIUM CHLORIDE 10% [Suspect]
     Active Substance: MAGNESIUM CHLORIDE
     Indication: PARENTERAL NUTRITION
     Route: 042
     Dates: start: 201501, end: 20150123
  11. POTASSIUM CHLORIDE 10% [Suspect]
     Active Substance: POTASSIUM CHLORIDE
     Indication: PARENTERAL NUTRITION
     Route: 042
     Dates: start: 201501, end: 20150123
  12. VITAMIN K [Suspect]
     Active Substance: PHYTONADIONE
     Indication: PARENTERAL NUTRITION
     Route: 042
     Dates: start: 201501, end: 20150123

REACTIONS (3)
  - Pyrexia [Fatal]
  - Septic shock [Fatal]
  - Seizure [Fatal]

NARRATIVE: CASE EVENT DATE: 20150123
